FAERS Safety Report 5180382-6 (Version None)
Quarter: 2006Q4

REPORT INFORMATION
  Report Type: 
  Country: None (occurrence: None)
  Receive Date: 20060919
  Receipt Date: 20060726
  Transmission Date: 20070319
  Serious: No
  Sender: FDA-Public Use
  Company Number: 2006US001704

PATIENT
  Age: 72 Year
  Sex: Female

DRUGS (4)
  1. VESICARE [Suspect]
     Indication: HYPERTONIC BLADDER
     Dosage: 5 MG, UID/QD, ORAL
     Route: 048
     Dates: start: 20060724
  2. ACTOS [Concomitant]
  3. SYNTHROID [Concomitant]
  4. ATENOLOL [Concomitant]

REACTIONS (2)
  - ABDOMINAL DISTENSION [None]
  - OEDEMA PERIPHERAL [None]
